FAERS Safety Report 22114248 (Version 1)
Quarter: 2023Q1

REPORT INFORMATION
  Report Type: Spontaneous
  Country: US (occurrence: None)
  Receive Date: 20230317
  Receipt Date: 20230317
  Transmission Date: 20230417
  Serious: Yes (Other)
  Sender: FDA-Public Use
  Company Number: None

PATIENT
  Age: 64 Year
  Sex: Female
  Weight: 90 kg

DRUGS (4)
  1. TOBRAMYCIN [Suspect]
     Active Substance: TOBRAMYCIN
     Indication: Conjunctivitis
     Dosage: 2 DROPS  EVERY 4 HOURS
     Route: 047
     Dates: start: 20230224, end: 20230302
  2. TOBRAMYCIN [Suspect]
     Active Substance: TOBRAMYCIN
     Indication: Conjunctivitis
     Dosage: 2 DROPS  EVERY 4 HOURS?
     Route: 047
     Dates: start: 20230303, end: 20230305
  3. Tens unit [Concomitant]
  4. Vitamin B complex plus C [Concomitant]

REACTIONS (10)
  - Ocular hyperaemia [None]
  - Swelling of eyelid [None]
  - Swelling face [None]
  - Vision blurred [None]
  - Burning sensation [None]
  - Eyelid irritation [None]
  - Pain [None]
  - Chemical burn of skin [None]
  - Erythema of eyelid [None]
  - Suspected product contamination [None]

NARRATIVE: CASE EVENT DATE: 20230226
